FAERS Safety Report 23845438 (Version 5)
Quarter: 2025Q1

REPORT INFORMATION
  Report Type: Other
  Country: US (occurrence: US)
  Receive Date: 20240511
  Receipt Date: 20250207
  Transmission Date: 20250408
  Serious: No
  Sender: TRAVERE THERAPEUTICS
  Company Number: US-TRAVERE-2024TVT00411

PATIENT
  Age: 57 Year
  Sex: Female

DRUGS (12)
  1. FILSPARI [Suspect]
     Active Substance: SPARSENTAN
     Indication: IgA nephropathy
     Dosage: 1 TABLET ONCE DAILY ON DAYS 1 THROUGH 14
     Route: 048
     Dates: start: 20240402
  2. FILSPARI [Suspect]
     Active Substance: SPARSENTAN
     Indication: Chronic kidney disease
     Dosage: 2 TABLETS ONCE DAILY ON DAYS 15 THROUGH 30
     Route: 048
     Dates: start: 20240416
  3. FILSPARI [Suspect]
     Active Substance: SPARSENTAN
     Route: 048
     Dates: end: 2024
  4. FILSPARI [Suspect]
     Active Substance: SPARSENTAN
     Route: 048
     Dates: start: 202408
  5. AMLODIPINE BESYLATE [Concomitant]
     Active Substance: AMLODIPINE BESYLATE
  6. ATORVASTATIN CALCIUM [Concomitant]
     Active Substance: ATORVASTATIN CALCIUM
  7. ICOSAPENT ETHYL [Concomitant]
     Active Substance: ICOSAPENT ETHYL
  8. FARXIGA [Concomitant]
     Active Substance: DAPAGLIFLOZIN PROPANEDIOL
  9. VITAMIN D2 [Concomitant]
     Active Substance: ERGOCALCIFEROL
  10. CARVEDILOL [Concomitant]
     Active Substance: CARVEDILOL
  11. TARPEYO [Concomitant]
     Active Substance: BUDESONIDE
  12. ALLOPURINOL [Concomitant]
     Active Substance: ALLOPURINOL

REACTIONS (7)
  - Peripheral swelling [Unknown]
  - Swelling face [Unknown]
  - Muscle strength abnormal [Unknown]
  - Fatigue [Unknown]
  - Decreased appetite [None]
  - Pruritus [Unknown]
  - Flank pain [Unknown]
